FAERS Safety Report 8918816 (Version 1)
Quarter: 2012Q4

REPORT INFORMATION
  Report Type: Report from Study
  Country: US (occurrence: US)
  Receive Date: 20121120
  Receipt Date: 20121120
  Transmission Date: 20130627
  Serious: Yes (Hospitalization)
  Sender: FDA-Public Use
  Company Number: US-US-EMD SERONO, INC.-7174721

PATIENT
  Sex: Female

DRUGS (3)
  1. REBIF [Suspect]
     Indication: MULTIPLE SCLEROSIS
     Dates: start: 20111103
  2. REBIF [Suspect]
     Dates: end: 201206
  3. STEROIDS [Suspect]
     Indication: MULTIPLE SCLEROSIS RELAPSE
     Route: 042

REACTIONS (4)
  - Blood pressure increased [Recovered/Resolved]
  - Chest pain [Unknown]
  - Multiple sclerosis relapse [Unknown]
  - Mood swings [Unknown]
